FAERS Safety Report 4429241-4 (Version None)
Quarter: 2004Q3

REPORT INFORMATION
  Report Type: 
  Country: None (occurrence: None)
  Receive Date: 20040817
  Receipt Date: 20040817
  Transmission Date: 20050211
  Serious: Yes (Hospitalization, Disabling)
  Sender: FDA-Public Use
  Company Number: None

PATIENT
  Sex: Male
  Weight: 76.6579 kg

DRUGS (2)
  1. DIMETAPP [Suspect]
     Indication: COUGH
     Dosage: 2 TEAS EVERY 4 HO ORAL
     Route: 048
     Dates: start: 20001217, end: 20010104
  2. DIMETAPP [Suspect]
     Indication: PNEUMONIA
     Dosage: 2 TEAS EVERY 4 HO ORAL
     Route: 048
     Dates: start: 20001217, end: 20010104

REACTIONS (3)
  - CEREBROVASCULAR ACCIDENT [None]
  - NECROSIS [None]
  - NERVOUS SYSTEM DISORDER [None]
